FAERS Safety Report 20733005 (Version 2)
Quarter: 2022Q2

REPORT INFORMATION
  Report Type: Spontaneous
  Country: US (occurrence: None)
  Receive Date: 20220421
  Receipt Date: 20220525
  Transmission Date: 20220721
  Serious: No
  Sender: FDA-Public Use
  Company Number: 2022A147209

PATIENT
  Sex: Female
  Weight: 119.7 kg

DRUGS (1)
  1. FASENRA [Suspect]
     Active Substance: BENRALIZUMAB
     Indication: Asthma
     Route: 030

REACTIONS (3)
  - Pruritus [Recovered/Resolved]
  - Oral pruritus [Recovered/Resolved]
  - Tongue pruritus [Recovered/Resolved]
